FAERS Safety Report 14658710 (Version 1)
Quarter: 2018Q1

REPORT INFORMATION
  Report Type: Spontaneous
  Country: US (occurrence: US)
  Receive Date: 20180320
  Receipt Date: 20180320
  Transmission Date: 20180509
  Serious: Yes (Death, Hospitalization)
  Sender: FDA-Public Use
  Company Number: US-ROCHE-2086487

PATIENT
  Age: 75 Year
  Sex: Female
  Weight: 75 kg

DRUGS (4)
  1. CARBOPLATIN. [Concomitant]
     Active Substance: CARBOPLATIN
     Route: 042
     Dates: start: 20180213
  2. HERCEPTIN [Suspect]
     Active Substance: TRASTUZUMAB
     Indication: BREAST CANCER
     Dosage: LOADING DOSE ;ONGOING: NO
     Route: 065
     Dates: start: 20180213, end: 20180213
  3. PERJETA [Suspect]
     Active Substance: PERTUZUMAB
     Indication: BREAST CANCER
     Dosage: LOADING DOSE ;ONGOING: NO
     Route: 042
     Dates: start: 20180213, end: 20180213
  4. TAXOL [Concomitant]
     Active Substance: PACLITAXEL

REACTIONS (4)
  - Intestinal ischaemia [Unknown]
  - Gastrointestinal ischaemia [Fatal]
  - Oesophageal disorder [Unknown]
  - Gastric disorder [Unknown]

NARRATIVE: CASE EVENT DATE: 20180215
